FAERS Safety Report 8521080-8 (Version None)
Quarter: 2012Q3

REPORT INFORMATION
  Report Type: 
  Country: None (occurrence: None)
  Receive Date: 20120706
  Receipt Date: 20120626
  Transmission Date: 20120928
  Serious: Yes (Other)
  Sender: FDA-Public Use
  Company Number: DKLU1082823

PATIENT

DRUGS (4)
  1. CISPLATIN [Suspect]
     Indication: GESTATIONAL TROPHOBLASTIC TUMOUR
     Dosage: 75 MG/M2 MILLIGRAM(S) / SQ. METER, DAY 1, INTRAVENOUS (NOT OTHERWISE SPECIFIED)
     Route: 042
  2. ETOPOSIDE [Suspect]
     Indication: GESTATIONAL TROPHOBLASTIC TUMOUR
     Dosage: 150 MG/M2 MILLIGRAM(S) / SQ. METER, DAY 1; 100 MG/M2 MILLIGRAM(S) / SQ. METER, DAY 8
  3. METHOTREXATE SODIUM [Suspect]
     Indication: GESTATIONAL TROPHOBLASTIC TUMOUR
     Dosage: 300 MG/M2 MILLIGRAM(S) / SQ. METER, DAY 8
  4. COSMEGEN [Suspect]
     Indication: GESTATIONAL TROPHOBLASTIC TUMOUR
     Dosage: 0.5 MG MILLIGRAM(S), DAY 8, INTRAVENOUS (NOT OTHERWISE SPECIFIED)
     Route: 042

REACTIONS (3)
  - GESTATIONAL TROPHOBLASTIC TUMOUR [None]
  - NEOPLASM PROGRESSION [None]
  - OTOTOXICITY [None]
